FAERS Safety Report 17288060 (Version 1)
Quarter: 2020Q1

REPORT INFORMATION
  Report Type: Spontaneous
  Country: US (occurrence: US)
  Receive Date: 20200120
  Receipt Date: 20200120
  Transmission Date: 20200409
  Serious: No
  Sender: FDA-Public Use
  Company Number: US-TEVA-2020-US-1168551

PATIENT
  Sex: Female

DRUGS (1)
  1. AZITHROMYCIN TEVA [Suspect]
     Active Substance: AZITHROMYCIN
     Dosage: 250 MILLIGRAM DAILY; FOR 6 DAYS
     Route: 065

REACTIONS (2)
  - Product taste abnormal [Unknown]
  - Headache [Unknown]
